FAERS Safety Report 5355745-6 (Version None)
Quarter: 2007Q2

REPORT INFORMATION
  Report Type: 
  Country: None (occurrence: None)
  Receive Date: 20070611
  Receipt Date: 20070611
  Transmission Date: 20071010
  Serious: Yes (Life-Threatening, Hospitalization)
  Sender: FDA-Public Use
  Company Number: None

PATIENT
  Age: 67 Year
  Sex: Male
  Weight: 64.8644 kg

DRUGS (1)
  1. LIDOCAINE [Suspect]
     Indication: BRONCHOSCOPY
     Dosage: ONCE TOP
     Route: 061
     Dates: start: 20070403, end: 20070403

REACTIONS (4)
  - BRADYCARDIA [None]
  - HYPOTENSION [None]
  - LOSS OF CONSCIOUSNESS [None]
  - PULSE PRESSURE DECREASED [None]
